FAERS Safety Report 10485992 (Version 1)
Quarter: 2014Q3

REPORT INFORMATION
  Report Type: Spontaneous
  Country: US (occurrence: None)
  Receive Date: 20140929
  Receipt Date: 20140929
  Transmission Date: 20150326
  Serious: Yes (Hospitalization, Other)
  Sender: FDA-Public Use
  Company Number: 2014VID00045

PATIENT
  Age: 16 Year
  Sex: Male

DRUGS (1)
  1. ACTIMMUNE [Suspect]
     Active Substance: INTERFERON GAMMA-1B
     Indication: CHRONIC GRANULOMATOUS DISEASE
     Route: 058

REACTIONS (7)
  - Lack of injection site rotation [None]
  - Lung infection [None]
  - Intentional product misuse [None]
  - Infection [None]
  - Injection site pain [None]
  - Weight decreased [None]
  - Lymph gland infection [None]
